FAERS Safety Report 5295711-2 (Version None)
Quarter: 2007Q2

REPORT INFORMATION
  Report Type: 
  Country: None (occurrence: None)
  Receive Date: 20070413
  Receipt Date: 20070409
  Transmission Date: 20071010
  Serious: Yes (Death, Hospitalization)
  Sender: FDA-Public Use
  Company Number: PHBS2007TR06172

PATIENT
  Age: 18 Year
  Sex: Female
  Weight: 39 kg

DRUGS (1)
  1. DESFERAL [Suspect]
     Indication: IRON OVERLOAD
     Dosage: 50 MG/KG/D
     Route: 042
     Dates: start: 20061205, end: 20070313

REACTIONS (2)
  - ARRHYTHMIA [None]
  - CARDIAC FAILURE [None]
